FAERS Safety Report 8538944-1 (Version None)
Quarter: 2012Q3

REPORT INFORMATION
  Report Type: 
  Country: None (occurrence: None)
  Receive Date: 20120726
  Receipt Date: 20120724
  Transmission Date: 20120928
  Serious: Yes (Hospitalization, Disabling, Other)
  Sender: FDA-Public Use
  Company Number: FR-AMGEN-FRACT2012023044

PATIENT
  Age: 65 Year
  Sex: Female
  Weight: 45 kg

DRUGS (22)
  1. FLUOROURACIL [Concomitant]
     Dosage: UNK
     Route: 042
     Dates: start: 20120215
  2. DOXYCYCLINE [Concomitant]
     Indication: GENITAL INFECTION
     Dosage: 100 MG, UNK
     Route: 048
     Dates: start: 20120216
  3. SOLU-MEDROL [Concomitant]
     Indication: PAIN IN EXTREMITY
     Dosage: UNK
     Route: 042
     Dates: start: 20120314
  4. TRIDESONIT [Concomitant]
     Indication: ACNE
     Dosage: UNK
     Dates: start: 20120315
  5. OLIMEL [Concomitant]
     Indication: WEIGHT DECREASED
     Dosage: UNK
     Route: 042
     Dates: start: 20120322
  6. DEXERYL [Concomitant]
     Dosage: UNK
     Dates: start: 20120216
  7. PANITUMUMAB [Suspect]
     Indication: GASTROOESOPHAGEAL CANCER
     Dosage: 270 MG, UNK
     Route: 042
     Dates: start: 20120215
  8. DURAGESIC-100 [Concomitant]
     Indication: PAIN IN EXTREMITY
     Dosage: UNK
     Route: 062
     Dates: start: 20120314
  9. PREDNISOLONE [Concomitant]
     Dosage: 20 MG, UNK
     Dates: start: 20120215, end: 20120219
  10. LOVENOX [Concomitant]
  11. BICARBONATE [Concomitant]
     Dosage: UNK
     Dates: start: 20120322
  12. ACETAMINOPHEN [Concomitant]
     Indication: PAIN IN EXTREMITY
     Dosage: UNK
     Route: 048
     Dates: start: 20120314
  13. EMLA [Concomitant]
  14. OMEPRAZOLE [Concomitant]
     Indication: GASTROOESOPHAGEAL REFLUX DISEASE
     Dosage: UNK
     Route: 048
     Dates: start: 20120301
  15. LAMALINE [Concomitant]
     Dosage: UNK
     Dates: start: 20120314
  16. LEVOFOLINATE CALCIUM [Concomitant]
     Dosage: 290 MG, UNK
     Route: 042
     Dates: start: 20120215
  17. POLYETHYLENE GLYCOL [Concomitant]
     Indication: CONSTIPATION
     Dosage: UNK
     Dates: start: 20120216
  18. MYCOSTATIN [Concomitant]
     Dosage: UNK
     Dates: start: 20120322
  19. OXALIPLATIN [Concomitant]
     Dosage: 127.5 MG, UNK
     Route: 042
     Dates: start: 20120215
  20. ERYFLUID [Concomitant]
     Indication: ACNE
     Dosage: UNK
     Route: 061
     Dates: start: 20120301
  21. ZOFRAN [Concomitant]
     Dosage: 8 MG, QD
     Route: 042
     Dates: start: 20120215
  22. VOGALENE LYOC [Concomitant]
     Dosage: 7.5 MG, UNK
     Route: 048
     Dates: start: 20120215

REACTIONS (8)
  - DEHYDRATION [None]
  - RASH [None]
  - WEIGHT DECREASED [None]
  - VOMITING [None]
  - SKIN REACTION [None]
  - NAUSEA [None]
  - CHEST PAIN [None]
  - CHOLECYSTITIS [None]
